FAERS Safety Report 7409031-0 (Version None)
Quarter: 2011Q2

REPORT INFORMATION
  Report Type: 
  Country: None (occurrence: None)
  Receive Date: 20110412
  Receipt Date: 20110330
  Transmission Date: 20111010
  Serious: Yes (Hospitalization)
  Sender: FDA-Public Use
  Company Number: PHHY2011TR26938

PATIENT
  Age: 33 Year
  Sex: Male
  Weight: 75 kg

DRUGS (5)
  1. PHENOBARBITAL TAB [Suspect]
     Dosage: 2 MG/KG, UNK
  2. SUCCINYLCHOLINE CHLORIDE [Suspect]
     Dosage: 0.75 MG/KG, UNK
  3. CLOZAPINE [Concomitant]
     Indication: SCHIZOPHRENIA
     Dosage: 600 MG, UNK
  4. ATROPINE [Suspect]
     Dosage: 0.15 MG/KG, UNK
  5. ELECTROCONVULSIVE THERAPY [Suspect]

REACTIONS (6)
  - SALIVARY GLAND PAIN [None]
  - DYSPHAGIA [None]
  - MASS [None]
  - MUMPS [None]
  - PAROTITIS [None]
  - PAROTID GLAND ENLARGEMENT [None]
